FAERS Safety Report 9018208 (Version 1)
Quarter: 2013Q1

REPORT INFORMATION
  Report Type: Spontaneous
  Country: US (occurrence: None)
  Receive Date: 20130111
  Receipt Date: 20130111
  Transmission Date: 20140127
  Serious: No
  Sender: FDA-Public Use
  Company Number: None

PATIENT
  Age: 69 Year
  Sex: Female
  Weight: 57.61 kg

DRUGS (2)
  1. LEXAPRO [Suspect]
     Indication: DEPRESSION
     Dosage: 20MG 1/2 TAB. A DAY PO
     Route: 048
     Dates: start: 20121015, end: 20130105
  2. ESCITALOPRAM [Concomitant]

REACTIONS (9)
  - Depressed mood [None]
  - Insomnia [None]
  - Activities of daily living impaired [None]
  - Panic attack [None]
  - Visual impairment [None]
  - Abdominal discomfort [None]
  - Palpitations [None]
  - Product substitution issue [None]
  - Disease recurrence [None]
